FAERS Safety Report 5870543-2 (Version None)
Quarter: 2008Q3

REPORT INFORMATION
  Report Type: 
  Country: None (occurrence: None)
  Receive Date: 20080902
  Receipt Date: 20080819
  Transmission Date: 20090109
  Serious: Yes (Hospitalization)
  Sender: FDA-Public Use
  Company Number: 2008AL009693

PATIENT
  Age: 66 Year
  Sex: Female
  Weight: 68.0396 kg

DRUGS (16)
  1. DIGOXIN [Suspect]
     Indication: DRUG USE FOR UNKNOWN INDICATION
     Dosage: 0.25MG, DAILY, PO
     Route: 048
     Dates: start: 20070724
  2. PROPRANOLOL [Concomitant]
  3. TRI-CHLOR [Concomitant]
  4. ZOCOR [Concomitant]
  5. ACTOS [Concomitant]
  6. GLUCOPHAGE [Concomitant]
  7. HUMULIN N [Concomitant]
  8. DIOVAN [Concomitant]
  9. LASIX [Concomitant]
  10. DIGITEK [Concomitant]
  11. PHENERGAN HCL [Concomitant]
  12. PROTONIX [Concomitant]
  13. REGLAN [Concomitant]
  14. METFORMIN HCL [Concomitant]
  15. LEVAQUIN [Concomitant]
  16. BETAPACE [Concomitant]

REACTIONS (12)
  - ABDOMINAL PAIN [None]
  - ABDOMINAL PAIN UPPER [None]
  - ANOREXIA [None]
  - ASTHENIA [None]
  - HYPERTENSION [None]
  - INCORRECT DOSE ADMINISTERED [None]
  - NAUSEA [None]
  - RENAL FAILURE [None]
  - THERAPEUTIC AGENT TOXICITY [None]
  - THROAT IRRITATION [None]
  - TREATMENT NONCOMPLIANCE [None]
  - VOMITING [None]
